FAERS Safety Report 6222913-0 (Version None)
Quarter: 2009Q2

REPORT INFORMATION
  Report Type: 
  Country: None (occurrence: None)
  Receive Date: 20090611
  Receipt Date: 20090603
  Transmission Date: 20091009
  Serious: Yes (Hospitalization)
  Sender: FDA-Public Use
  Company Number: FR-AVENTIS-200912042FR

PATIENT
  Age: 73 Year
  Sex: Male

DRUGS (4)
  1. TAXOTERE [Suspect]
     Dosage: DOSE UNIT: 009
     Route: 042
     Dates: start: 20080519, end: 20080519
  2. CARBOPLATIN [Suspect]
     Dosage: DOSE UNIT: 009
     Route: 042
     Dates: start: 20080519, end: 20080519
  3. FLUOROURACIL [Suspect]
     Dosage: DOSE UNIT: 009
     Route: 042
     Dates: start: 20080519, end: 20080519
  4. ERBITUX [Suspect]
     Dosage: DOSE UNIT: 009
     Route: 042
     Dates: start: 20080519, end: 20080519

REACTIONS (4)
  - FEBRILE BONE MARROW APLASIA [None]
  - HICCUPS [None]
  - NAUSEA [None]
  - VOMITING [None]
